FAERS Safety Report 8532517-2 (Version None)
Quarter: 2012Q3

REPORT INFORMATION
  Report Type: 
  Country: None (occurrence: None)
  Receive Date: 20120724
  Receipt Date: 20120713
  Transmission Date: 20120928
  Serious: Yes (Other)
  Sender: FDA-Public Use
  Company Number: US-009507513-1207USA007061

PATIENT

DRUGS (4)
  1. REBETOL [Concomitant]
  2. PROCRIT [Concomitant]
     Indication: BLOOD IRON DECREASED
  3. PEG-INTRON [Suspect]
     Indication: HEPATITIS C
     Dosage: UNK, QW
     Dates: start: 20120101
  4. PEG-INTRON [Suspect]
     Dosage: UNK, QW
     Dates: start: 20120201

REACTIONS (1)
  - ACUTE RESPIRATORY DISTRESS SYNDROME [None]
